FAERS Safety Report 15864299 (Version 1)
Quarter: 2019Q1

REPORT INFORMATION
  Report Type: Spontaneous
  Country: US (occurrence: US)
  Receive Date: 20190124
  Receipt Date: 20190124
  Transmission Date: 20190417
  Serious: No
  Sender: FDA-Public Use
  Company Number: US-DERMIRA, INC.-US-2018DER000172

PATIENT

DRUGS (1)
  1. QBREXZA [Suspect]
     Active Substance: GLYCOPYRRONIUM TOSYLATE
     Indication: HYPERHIDROSIS
     Dosage: UNK, UNK
     Route: 061
     Dates: start: 20181210, end: 20181211

REACTIONS (3)
  - Off label use [Unknown]
  - Vision blurred [Recovering/Resolving]
  - Mydriasis [Not Recovered/Not Resolved]

NARRATIVE: CASE EVENT DATE: 20181210
